FAERS Safety Report 12980352 (Version 3)
Quarter: 2017Q1

REPORT INFORMATION
  Report Type: Report from Study
  Country: US (occurrence: US)
  Receive Date: 20161128
  Receipt Date: 20170224
  Transmission Date: 20170428
  Serious: Yes (Hospitalization)
  Sender: FDA-Public Use
  Company Number: PHHY2016US163128

PATIENT
  Age: 40 Year
  Sex: Female
  Weight: 59 kg

DRUGS (11)
  1. SODIUM CHLORIDE. [Concomitant]
     Active Substance: SODIUM CHLORIDE
     Indication: CYSTIC FIBROSIS
     Dosage: 4 ML (NEB), BID
     Route: 065
     Dates: start: 20151201
  2. ALBUTEROL. [Concomitant]
     Active Substance: ALBUTEROL
     Dosage: 2.5 MG NEB (3 L SOLUTION), BID
     Route: 065
     Dates: start: 20161105
  3. DORNASA ALFA [Concomitant]
     Indication: CYSTIC FIBROSIS
     Dosage: 2.5 MG, QD
     Route: 055
  4. SODIUM CHLORIDE. [Concomitant]
     Active Substance: SODIUM CHLORIDE
     Dosage: 4 ML (NEB), BID
     Route: 065
     Dates: start: 20161105
  5. ALBUTEROL. [Concomitant]
     Active Substance: ALBUTEROL
     Dosage: 2 DF, Q6H (PRN)
     Route: 065
     Dates: start: 2016
  6. ALBUTEROL. [Concomitant]
     Active Substance: ALBUTEROL
     Indication: CYSTIC FIBROSIS
     Dosage: 2.5 MG NEB (3 L SOLUTION), BID
     Route: 065
     Dates: start: 20140903
  7. ALBUTEROL. [Concomitant]
     Active Substance: ALBUTEROL
     Indication: CYSTIC FIBROSIS
     Dosage: 2 DF, Q6H (PRN)
     Route: 065
  8. TOBI PODHALER [Suspect]
     Active Substance: TOBRAMYCIN
     Indication: CYSTIC FIBROSIS
     Dosage: 112 OT, BID
     Route: 055
     Dates: start: 20160830, end: 20160926
  9. DORNASA ALFA [Concomitant]
     Dosage: 2.5 MG, QD
     Route: 055
     Dates: start: 20161105
  10. TOBI PODHALER [Suspect]
     Active Substance: TOBRAMYCIN
     Indication: PSEUDOMONAS INFECTION
     Dosage: 28 OT, BID
     Route: 055
     Dates: start: 20161012, end: 20161108
  11. CAYSTON [Suspect]
     Active Substance: AZTREONAM
     Indication: PRODUCT USED FOR UNKNOWN INDICATION
     Dosage: 75 OT, TID
     Route: 065
     Dates: start: 20161101, end: 20161128

REACTIONS (6)
  - Headache [Recovered/Resolved]
  - Infective pulmonary exacerbation of cystic fibrosis [Recovered/Resolved]
  - Infective pulmonary exacerbation of cystic fibrosis [Recovered/Resolved]
  - Dyspnoea [Unknown]
  - Cough [Unknown]
  - Sinus congestion [Unknown]

NARRATIVE: CASE EVENT DATE: 20160805
